FAERS Safety Report 4615055-9 (Version None)
Quarter: 2005Q1

REPORT INFORMATION
  Report Type: 
  Country: None (occurrence: None)
  Receive Date: 20050318
  Receipt Date: 20050318
  Transmission Date: 20050727
  Serious: Yes (Disabling)
  Sender: FDA-Public Use
  Company Number: None

PATIENT
  Age: 48 Year
  Sex: Female
  Weight: 56.6996 kg

DRUGS (1)
  1. TETRABENAZINE (XENAZINE) 112 TABLETS 25 MG [Suspect]
     Indication: DYSTONIA
     Dosage: 2 TABLETS TWICE A DAY

REACTIONS (2)
  - CONDITION AGGRAVATED [None]
  - DYSKINESIA [None]
